FAERS Safety Report 12758439 (Version 1)
Quarter: 2016Q3

REPORT INFORMATION
  Report Type: Spontaneous
  Country: US (occurrence: US)
  Receive Date: 20160917
  Receipt Date: 20160917
  Transmission Date: 20161109
  Serious: Yes (Other)
  Sender: FDA-Public Use
  Company Number: None

PATIENT
  Age: 38 Year
  Sex: Female
  Weight: 65.25 kg

DRUGS (10)
  1. XANAX [Concomitant]
     Active Substance: ALPRAZOLAM
  2. INDOMETHACIN. [Concomitant]
     Active Substance: INDOMETHACIN
  3. HYOSCYAMINE. [Suspect]
     Active Substance: HYOSCYAMINE
     Indication: IRRITABLE BOWEL SYNDROME
     Dates: start: 20160914, end: 20160914
  4. BENADRYL [Concomitant]
     Active Substance: DIPHENHYDRAMINE HYDROCHLORIDE
  5. WOMEN^S MULTIVITAMIN [Concomitant]
  6. HYOSCYAMINE. [Suspect]
     Active Substance: HYOSCYAMINE
     Indication: MUSCLE SPASMS
     Dates: start: 20160914, end: 20160914
  7. ATENOLOL. [Concomitant]
     Active Substance: ATENOLOL
  8. PHENERGAN [Concomitant]
     Active Substance: PROMETHAZINE HYDROCHLORIDE
  9. SUDAFED [Concomitant]
     Active Substance: PSEUDOEPHEDRINE HYDROCHLORIDE
  10. PANTOPRAZOLE [Concomitant]
     Active Substance: PANTOPRAZOLE SODIUM

REACTIONS (5)
  - Headache [None]
  - Photophobia [None]
  - Vision blurred [None]
  - Mydriasis [None]
  - Palpitations [None]

NARRATIVE: CASE EVENT DATE: 20160916
